FAERS Safety Report 17262692 (Version 1)
Quarter: 2020Q1

REPORT INFORMATION
  Report Type: Report from Study
  Country: BR (occurrence: CO)
  Receive Date: 20200113
  Receipt Date: 20200113
  Transmission Date: 20200409
  Serious: Yes (Other)
  Sender: FDA-Public Use
  Company Number: CO-ASTELLAS-2019US051699

PATIENT

DRUGS (1)
  1. TACROLIMUS. [Suspect]
     Active Substance: TACROLIMUS
     Indication: PROPHYLAXIS AGAINST TRANSPLANT REJECTION
     Route: 048

REACTIONS (6)
  - Smooth muscle antibody [Unknown]
  - Osteoporosis [Unknown]
  - Rectal haemorrhage [Unknown]
  - Bipolar disorder [Unknown]
  - Diabetes mellitus [Unknown]
  - Urinary tract infection [Recovered/Resolved]
